FAERS Safety Report 19083421 (Version 1)
Quarter: 2021Q2

REPORT INFORMATION
  Report Type: Spontaneous
  Country: US (occurrence: US)
  Receive Date: 20210401
  Receipt Date: 20210401
  Transmission Date: 20210717
  Serious: Yes (Hospitalization)
  Sender: FDA-Public Use
  Company Number: US-BIOVITRUM-2021US3183

PATIENT
  Sex: Male
  Weight: 15 kg

DRUGS (9)
  1. POLY?VI?SOL WITH IRON [Concomitant]
     Active Substance: IRON\VITAMINS
  2. ALBUTEROL SULFATE. [Concomitant]
     Active Substance: ALBUTEROL SULFATE
  3. DIAZEPAM. [Concomitant]
     Active Substance: DIAZEPAM
     Dosage: 100 % POWDER
  4. SYNAGIS [Suspect]
     Active Substance: PALIVIZUMAB
     Indication: HYPOXIC-ISCHAEMIC ENCEPHALOPATHY
  5. PULMOZYME [Concomitant]
     Active Substance: DORNASE ALFA
     Dosage: 1 MG/ML SOLUTION
  6. SYNAGIS [Suspect]
     Active Substance: PALIVIZUMAB
     Indication: HYPERCAPNIA
  7. EPINEPHRINE HCL [Concomitant]
     Active Substance: EPINEPHRINE
  8. SYNAGIS [Suspect]
     Active Substance: PALIVIZUMAB
     Indication: GASTROSTOMY
     Route: 030
     Dates: start: 201911
  9. LEVETIRACETAM. [Concomitant]
     Active Substance: LEVETIRACETAM

REACTIONS (2)
  - Rhinovirus infection [Unknown]
  - Off label use [Unknown]
